FAERS Safety Report 9935345 (Version 1)
Quarter: 2014Q1

REPORT INFORMATION
  Report Type: Spontaneous
  Country: US (occurrence: US)
  Receive Date: 20140228
  Receipt Date: 20140228
  Transmission Date: 20141002
  Serious: Yes (Other)
  Sender: FDA-Public Use
  Company Number: US-PFIZER INC-2014057131

PATIENT
  Age: 43 Year
  Sex: Female
  Weight: 46.7 kg

DRUGS (3)
  1. CHANTIX [Suspect]
     Indication: SMOKING CESSATION THERAPY
     Dosage: UNK
  2. TOPAMAX [Concomitant]
     Indication: MIGRAINE
     Dosage: 200 MG, DAILY
  3. ARMOUR THYROID [Concomitant]
     Indication: HYPOTHYROIDISM
     Dosage: 90 MG, DAILY

REACTIONS (1)
  - Cerebrovascular accident [Unknown]
